FAERS Safety Report 20722712 (Version 3)
Quarter: 2023Q1

REPORT INFORMATION
  Report Type: Spontaneous
  Country: US (occurrence: US)
  Receive Date: 20220419
  Receipt Date: 20230328
  Transmission Date: 20230417
  Serious: Yes (Hospitalization)
  Sender: FDA-Public Use
  Company Number: US-CELGENE-USA-20211003966

PATIENT
  Age: 66 Year
  Sex: Male
  Weight: 91 kg

DRUGS (3)
  1. POMALYST [Suspect]
     Active Substance: POMALIDOMIDE
     Indication: Plasma cell myeloma
     Dosage: 4 MILLIGRAM?21 DAYS ON 7 DAYS OFF
     Route: 048
     Dates: start: 20210406
  2. POMALYST [Suspect]
     Active Substance: POMALIDOMIDE
     Dosage: DAILY
     Route: 048
     Dates: start: 202203
  3. DARZALEX FASPRO [Suspect]
     Active Substance: DARATUMUMAB\HYALURONIDASE-FIHJ
     Indication: Plasma cell myeloma
     Dosage: ADMINISTERED SQ Q2  MONTH
     Route: 058
     Dates: start: 20210419

REACTIONS (4)
  - Fatigue [Recovering/Resolving]
  - Decreased appetite [Unknown]
  - Hypotension [Unknown]
  - Dizziness [Recovering/Resolving]

NARRATIVE: CASE EVENT DATE: 20210101
